FAERS Safety Report 5066669-6 (Version None)
Quarter: 2006Q3

REPORT INFORMATION
  Report Type: 
  Country: None (occurrence: None)
  Receive Date: 20060710
  Receipt Date: 20060301
  Transmission Date: 20061208
  Serious: Yes (Hospitalization, Other)
  Sender: FDA-Public Use
  Company Number: PHEH2006US01992

PATIENT
  Age: 56 Year
  Sex: Female
  Weight: 128.3 kg

DRUGS (5)
  1. GLEEVEC [Suspect]
     Indication: CHRONIC MYELOID LEUKAEMIA
     Dosage: 400 MG QD ORAL
     Route: 048
     Dates: start: 20020110, end: 20060202
  2. LASIX [Concomitant]
  3. COMPAZINE [Concomitant]
  4. ZOLOFT [Concomitant]
  5. ATIVAN [Concomitant]

REACTIONS (10)
  - CARDIOMEGALY [None]
  - DYSPNOEA [None]
  - ELECTROCARDIOGRAM T WAVE ABNORMAL [None]
  - NAUSEA [None]
  - OEDEMA PERIPHERAL [None]
  - ORTHOPNOEA [None]
  - PERICARDIAL EFFUSION [None]
  - PERICARDIAL EXCISION [None]
  - PERICARDITIS [None]
  - SINUS TACHYCARDIA [None]
